FAERS Safety Report 9357667 (Version 1)
Quarter: 2013Q2

REPORT INFORMATION
  Report Type: Spontaneous
  Country: US (occurrence: US)
  Receive Date: 20130620
  Receipt Date: 20130620
  Transmission Date: 20140414
  Serious: Yes (Other)
  Sender: FDA-Public Use
  Company Number: US-PFIZER INC-2013184362

PATIENT
  Age: 46 Year
  Sex: Female
  Weight: 97.51 kg

DRUGS (2)
  1. RELPAX [Suspect]
     Indication: MIGRAINE
     Dosage: 40 MG, AS NEEDED
     Route: 048
     Dates: start: 2003
  2. PRILOSEC [Concomitant]
     Dosage: UNK

REACTIONS (1)
  - Spinal disorder [Unknown]
